FAERS Safety Report 23919108 (Version 1)
Quarter: 2024Q2

REPORT INFORMATION
  Report Type: Other
  Country: CN (occurrence: None)
  Receive Date: 20240530
  Receipt Date: 20240530
  Transmission Date: 20240716
  Serious: Yes (Other)
  Sender: FDA-Public Use
  Company Number: CN-ROCHE-3570856

PATIENT
  Age: 54 Year
  Sex: Female

DRUGS (1)
  1. RITUXIMAB [Suspect]
     Active Substance: RITUXIMAB
     Indication: Diffuse large B-cell lymphoma
     Dosage: 3 DOSES
     Route: 065

REACTIONS (3)
  - Acute myeloid leukaemia [Recovered/Resolved]
  - Adenovirus infection [Recovered/Resolved]
  - Epstein-Barr virus infection [Recovered/Resolved]
